FAERS Safety Report 15530090 (Version 3)
Quarter: 2018Q4

REPORT INFORMATION
  Report Type: Report from Study
  Country: US (occurrence: US)
  Receive Date: 20181018
  Receipt Date: 20181105
  Transmission Date: 20190205
  Serious: Yes (Death, Hospitalization, Other)
  Sender: FDA-Public Use
  Company Number: US-BRISTOL-MYERS SQUIBB COMPANY-BMS-2018-097800

PATIENT
  Age: 35 Year
  Sex: Female
  Weight: 68.4 kg

DRUGS (2)
  1. NIVOLUMAB [Suspect]
     Active Substance: NIVOLUMAB
     Indication: PARAGANGLION NEOPLASM
     Dosage: 240 MG, UNK
     Route: 042
     Dates: start: 20180806, end: 20180913
  2. IPILIMUMAB [Suspect]
     Active Substance: IPILIMUMAB
     Indication: PARAGANGLION NEOPLASM
     Dosage: 1 MG/KG, UNK
     Route: 042
     Dates: start: 20180806, end: 20180806

REACTIONS (2)
  - Somnolence [Recovered/Resolved with Sequelae]
  - Death [Fatal]

NARRATIVE: CASE EVENT DATE: 20180924
